FAERS Safety Report 7579761-9 (Version None)
Quarter: 2011Q2

REPORT INFORMATION
  Report Type: 
  Country: None (occurrence: None)
  Receive Date: 20110622
  Receipt Date: 20110609
  Transmission Date: 20111010
  Serious: Yes (Other)
  Sender: FDA-Public Use
  Company Number: ABR_00149_2011

PATIENT
  Sex: Male

DRUGS (1)
  1. ERYTHROMYCIN ETHYLSUCCINATE [Suspect]
     Indication: EAR INFECTION
     Dates: start: 19920101, end: 19920101

REACTIONS (2)
  - URTICARIA [None]
  - JOINT SWELLING [None]
